FAERS Safety Report 13446490 (Version 1)
Quarter: 2017Q2

REPORT INFORMATION
  Report Type: Other
  Country: DE (occurrence: DE)
  Receive Date: 20170417
  Receipt Date: 20170417
  Transmission Date: 20170830
  Serious: Yes (Congenital Anomaly, Other)
  Sender: FDA-Public Use
  Company Number: DE-LUPIN PHARMACEUTICALS INC.-2017-01672

PATIENT
  Age: 1 Day
  Sex: Male
  Weight: 3.22 kg

DRUGS (6)
  1. VENLAFAXINE [Suspect]
     Active Substance: VENLAFAXINE HYDROCHLORIDE
     Indication: DEPRESSION
     Dosage: 225 MG, PER DAY
     Route: 064
     Dates: start: 20151112
  2. PENICILLIN                         /00000901/ [Concomitant]
     Active Substance: PENICILLIN G
     Indication: PNEUMONIA
     Dosage: UNK
     Route: 064
     Dates: start: 20160411, end: 20160417
  3. VENLAFAXINE [Suspect]
     Active Substance: VENLAFAXINE HYDROCHLORIDE
     Dosage: 75 MG, PER DAY
     Route: 064
     Dates: end: 20160816
  4. QUETIAPINE. [Suspect]
     Active Substance: QUETIAPINE
     Dosage: 25 MG, PER DAY
     Route: 064
     Dates: end: 20160816
  5. QUETIAPINE. [Suspect]
     Active Substance: QUETIAPINE
     Indication: DEPRESSION
     Dosage: 100 MG, PER DAY
     Route: 064
     Dates: start: 20151112
  6. FOLSAURE ABZ [Concomitant]
     Indication: PROPHYLAXIS OF NEURAL TUBE DEFECT
     Dosage: 5 MG, QD
     Route: 064

REACTIONS (5)
  - Bradycardia neonatal [Recovered/Resolved]
  - Congenital choroid plexus cyst [Unknown]
  - Drug withdrawal syndrome neonatal [Recovered/Resolved]
  - Hypertonia neonatal [Recovering/Resolving]
  - Foetal exposure during pregnancy [Unknown]

NARRATIVE: CASE EVENT DATE: 20160816
